FAERS Safety Report 5793129-7 (Version None)
Quarter: 2008Q2

REPORT INFORMATION
  Report Type: 
  Country: None (occurrence: None)
  Receive Date: 20080627
  Receipt Date: 20080505
  Transmission Date: 20081010
  Serious: No
  Sender: FDA-Public Use
  Company Number: A0717337A

PATIENT
  Age: 64 Year
  Sex: Male

DRUGS (4)
  1. FLOVENT [Suspect]
     Dosage: 1SPR PER DAY
     Route: 045
     Dates: start: 20080321
  2. SINGULAIR [Concomitant]
  3. CASODEX [Concomitant]
  4. ZOLADEX [Concomitant]

REACTIONS (2)
  - DRUG INEFFECTIVE [None]
  - PHARMACEUTICAL PRODUCT COMPLAINT [None]
